FAERS Safety Report 19804321 (Version 1)
Quarter: 2021Q3

REPORT INFORMATION
  Report Type: Spontaneous
  Country: US (occurrence: US)
  Receive Date: 20210908
  Receipt Date: 20210908
  Transmission Date: 20211014
  Serious: No
  Sender: FDA-Public Use
  Company Number: US-FARMAPROD-202105-0712

PATIENT
  Sex: Female

DRUGS (13)
  1. ATORVASTATIN CALCIUM. [Concomitant]
     Active Substance: ATORVASTATIN CALCIUM
  2. OXERVATE [Suspect]
     Active Substance: CENEGERMIN-BKBJ
     Indication: NEUROTROPHIC KERATOPATHY
     Route: 047
     Dates: start: 20210503
  3. LANTUS [Concomitant]
     Active Substance: INSULIN GLARGINE
     Dosage: 100 ML VIALS
  4. PAROXETINE. [Concomitant]
     Active Substance: PAROXETINE
     Dosage: EXTENDED RELEASE TABLET
  5. MOXIFLOXACIN. [Concomitant]
     Active Substance: MOXIFLOXACIN
  6. TOLTERODINE TARTRATE. [Concomitant]
     Active Substance: TOLTERODINE TARTRATE
  7. XALATAN [Concomitant]
     Active Substance: LATANOPROST
  8. COMBIGAN [Concomitant]
     Active Substance: BRIMONIDINE TARTRATE\TIMOLOL MALEATE
     Dosage: 0.2%?0.5%
  9. VITAMIN B12 [Concomitant]
     Active Substance: CYANOCOBALAMIN
  10. OXERVATE [Suspect]
     Active Substance: CENEGERMIN-BKBJ
     Indication: HYPOAESTHESIA EYE
  11. CLOPIDOGREL [Concomitant]
     Active Substance: CLOPIDOGREL BISULFATE
  12. ASPIRINE [Concomitant]
     Active Substance: ASPIRIN
  13. OCUVITE ADULT 50 PLUS [Concomitant]

REACTIONS (2)
  - Ocular hyperaemia [Unknown]
  - Product use complaint [Unknown]
